FAERS Safety Report 5066690-8 (Version None)
Quarter: 2006Q3

REPORT INFORMATION
  Report Type: 
  Country: None (occurrence: None)
  Receive Date: 20060801
  Receipt Date: 20060405
  Transmission Date: 20061208
  Serious: Yes (Hospitalization, Other)
  Sender: FDA-Public Use
  Company Number: US-GLAXOSMITHKLINE-B0419876A

PATIENT
  Age: 31 Year
  Sex: Male

DRUGS (2)
  1. EPZICOM [Suspect]
     Indication: HIV INFECTION
     Dosage: 1TAB PER DAY
     Route: 048
     Dates: start: 20060324
  2. KALETRA [Suspect]
     Indication: HIV INFECTION
     Route: 048
     Dates: start: 20060324

REACTIONS (8)
  - CHILLS [None]
  - DIARRHOEA [None]
  - DRUG HYPERSENSITIVITY [None]
  - HYPERHIDROSIS [None]
  - NAUSEA [None]
  - PYREXIA [None]
  - STAPHYLOCOCCAL INFECTION [None]
  - VOMITING [None]
